FAERS Safety Report 13527021 (Version 1)
Quarter: 2017Q2

REPORT INFORMATION
  Report Type: Spontaneous
  Country: US (occurrence: US)
  Receive Date: 20170509
  Receipt Date: 20170509
  Transmission Date: 20170830
  Serious: Yes (Disabling)
  Sender: FDA-Public Use
  Company Number: None

PATIENT
  Age: 38 Year
  Sex: Female
  Weight: 96.75 kg

DRUGS (8)
  1. TIROSINT [Concomitant]
     Active Substance: LEVOTHYROXINE SODIUM
  2. NASCOBAL [Concomitant]
     Active Substance: CYANOCOBALAMIN
  3. VITAMIN B12 [Concomitant]
     Active Substance: CYANOCOBALAMIN
  4. INJECTAFER [Suspect]
     Active Substance: FERRIC CARBOXYMALTOSE
     Indication: IRON DEFICIENCY ANAEMIA
     Dosage: QUANTITY:2 INFUSION;OTHER FREQUENCY:EVERY 7 DAYS;?
     Route: 042
     Dates: start: 20170307, end: 20170314
  5. LEXAPRO [Concomitant]
     Active Substance: ESCITALOPRAM OXALATE
  6. HYDROXYZINE [Concomitant]
     Active Substance: HYDROXYZINE HYDROCHLORIDE
  7. ADVIL [Concomitant]
     Active Substance: IBUPROFEN
  8. AMBIEN [Concomitant]
     Active Substance: ZOLPIDEM TARTRATE

REACTIONS (18)
  - Musculoskeletal stiffness [None]
  - Underdose [None]
  - Pain [None]
  - Diarrhoea [None]
  - Fatigue [None]
  - Muscular weakness [None]
  - Frustration tolerance decreased [None]
  - Arthralgia [None]
  - Anxiety [None]
  - Flushing [None]
  - Nausea [None]
  - Chills [None]
  - Back pain [None]
  - Blood phosphorus decreased [None]
  - Asthenia [None]
  - Impaired work ability [None]
  - Pelvic pain [None]
  - Vomiting [None]

NARRATIVE: CASE EVENT DATE: 20170308
